FAERS Safety Report 20561031 (Version 3)
Quarter: 2022Q3

REPORT INFORMATION
  Report Type: Report from Study
  Country: US (occurrence: US)
  Receive Date: 20220307
  Receipt Date: 20220726
  Transmission Date: 20221027
  Serious: Yes (Hospitalization, Other)
  Sender: FDA-Public Use
  Company Number: US-BAYER-2022A027622

PATIENT
  Sex: Female
  Weight: 101.1 kg

DRUGS (6)
  1. COPANLISIB [Suspect]
     Active Substance: COPANLISIB
     Indication: Invasive breast carcinoma
     Dosage: 45 MG
     Dates: start: 20220105, end: 20220105
  2. COPANLISIB [Suspect]
     Active Substance: COPANLISIB
     Indication: Metastases to liver
     Dosage: 45 MG
     Dates: start: 20220112, end: 20220112
  3. COPANLISIB [Suspect]
     Active Substance: COPANLISIB
     Indication: Metastases to bone
  4. ERIBULIN MESYLATE [Suspect]
     Active Substance: ERIBULIN MESYLATE
     Indication: Invasive breast carcinoma
     Dosage: 1.4 MG/M2, DAYS 1 AND 8
     Dates: start: 20220105, end: 20220105
  5. ERIBULIN MESYLATE [Suspect]
     Active Substance: ERIBULIN MESYLATE
     Indication: Metastases to liver
     Dosage: 1.4 MG/M2, DAYS 1 AND 8
     Dates: start: 20220112, end: 20220112
  6. ERIBULIN MESYLATE [Suspect]
     Active Substance: ERIBULIN MESYLATE
     Indication: Metastases to bone

REACTIONS (8)
  - Acute kidney injury [Recovered/Resolved]
  - Anaemia [Recovered/Resolved]
  - White blood cell count decreased [Recovered/Resolved]
  - Hypovolaemic shock [Recovered/Resolved]
  - Acute respiratory failure [Recovered/Resolved]
  - Muscular weakness [Recovered/Resolved]
  - Blood creatinine increased [Recovered/Resolved]
  - Hypocalcaemia [Recovered/Resolved]

NARRATIVE: CASE EVENT DATE: 20220118
